FAERS Safety Report 8597972-0 (Version None)
Quarter: 2012Q3

REPORT INFORMATION
  Report Type: 
  Country: None (occurrence: None)
  Receive Date: 20120802
  Receipt Date: 20120717
  Transmission Date: 20120928
  Serious: Yes (Death, Other)
  Sender: FDA-Public Use
  Company Number: TPA2012A00273

PATIENT
  Age: 69 Year
  Sex: Male
  Weight: 71.6683 kg

DRUGS (6)
  1. AVANDIA [Concomitant]
  2. GLUCOPHAGE [Concomitant]
  3. GLUCOTROL [Concomitant]
  4. ACTOS [Suspect]
     Indication: TYPE 2 DIABETES MELLITUS
     Dates: start: 20070307, end: 20081209
  5. METFFORMIN HYDROCHLORIDE [Concomitant]
  6. MICRONASE [Concomitant]

REACTIONS (1)
  - BLADDER CANCER [None]
